FAERS Safety Report 20731705 (Version 2)
Quarter: 2022Q2

REPORT INFORMATION
  Report Type: Spontaneous
  Country: SI (occurrence: None)
  Receive Date: 20220420
  Receipt Date: 20220428
  Transmission Date: 20220721
  Serious: Yes (Other)
  Sender: FDA-Public Use
  Company Number: 2022A146840

PATIENT
  Age: 81 Year
  Sex: Female

DRUGS (11)
  1. QUETIAPINE FUMARATE [Suspect]
     Active Substance: QUETIAPINE FUMARATE
     Indication: Restlessness
     Dosage: IN THE EVENING
     Route: 048
     Dates: start: 202203
  2. FUROSEMIDE [Suspect]
     Active Substance: FUROSEMIDE
     Indication: Cardiac failure
     Dosage: 40 MG +20 MG
     Route: 065
     Dates: start: 202203
  3. WARFARIN SODIUM [Suspect]
     Active Substance: WARFARIN SODIUM
     Indication: Atrial fibrillation
     Dosage: ACCORDING TO THE SCHEME3.0MG UNKNOWN
     Route: 065
     Dates: start: 20211227, end: 20220316
  4. FENOTEROL HYDROBROMIDE\IPRATROPIUM BROMIDE [Concomitant]
     Active Substance: FENOTEROL HYDROBROMIDE\IPRATROPIUM BROMIDE
  5. ACETAMINOPHEN\TRAMADOL HYDROCHLORIDE [Concomitant]
     Active Substance: ACETAMINOPHEN\TRAMADOL HYDROCHLORIDE
     Dosage: 1.0DF INTERMITTENT
  6. ISOPHANE INSULIN [Concomitant]
     Active Substance: INSULIN NOS
     Dosage: ACCORDING TO THE SCHEME
  7. ERTAPENEM [Concomitant]
     Active Substance: ERTAPENEM
  8. PANTOPRAZOLE SODIUM [Concomitant]
     Active Substance: PANTOPRAZOLE SODIUM
  9. NOVORAPID [Concomitant]
     Active Substance: INSULIN ASPART
     Dosage: ACCORDING TO THE SCHEME
  10. HIDROKORTIZON [Concomitant]
     Dosage: ACCORDING TO THE SCHEME10.0MG UNKNOWN
  11. PERFALGAN [Concomitant]
     Active Substance: ACETAMINOPHEN

REACTIONS (3)
  - Metabolic alkalosis [Recovering/Resolving]
  - Petechiae [Recovered/Resolved]
  - Somnolence [Recovered/Resolved]
